FAERS Safety Report 7419615-1 (Version None)
Quarter: 2011Q1

REPORT INFORMATION
  Report Type: 
  Country: None (occurrence: None)
  Receive Date: 20110302
  Receipt Date: 20101115
  Transmission Date: 20110831
  Serious: No
  Sender: FDA-Public Use
  Company Number: 019892

PATIENT
  Sex: Female
  Weight: 101.6 kg

DRUGS (4)
  1. CIMZIA [Suspect]
  2. CIMZIA [Suspect]
     Indication: CROHN'S DISEASE
     Dosage: (200 MG 1X/2 WEEKS SUBCUTANEOUS), (200 MG 1X/2 WEEKS SUBCUTANEOUS)
     Route: 058
     Dates: start: 20090701
  3. CIMZIA [Suspect]
     Indication: CROHN'S DISEASE
     Dosage: (200 MG 1X/2 WEEKS SUBCUTANEOUS), (200 MG 1X/2 WEEKS SUBCUTANEOUS)
     Route: 058
     Dates: start: 20090820
  4. YASMIN [Concomitant]

REACTIONS (10)
  - ERYTHEMA NODOSUM [None]
  - ABDOMINAL PAIN [None]
  - CROHN'S DISEASE [None]
  - INSOMNIA [None]
  - PAIN [None]
  - FURUNCLE [None]
  - FREQUENT BOWEL MOVEMENTS [None]
  - HEADACHE [None]
  - OESOPHAGEAL STENOSIS [None]
  - OESOPHAGEAL SPASM [None]
